FAERS Safety Report 8179059-4 (Version None)
Quarter: 2012Q1

REPORT INFORMATION
  Report Type: 
  Country: None (occurrence: None)
  Receive Date: 20120302
  Receipt Date: 20120124
  Transmission Date: 20120608
  Serious: Yes (Hospitalization, Other)
  Sender: FDA-Public Use
  Company Number: US-ROCHE-784073

PATIENT
  Sex: Female
  Weight: 70.37 kg

DRUGS (2)
  1. ACCUTANE [Suspect]
     Indication: ACNE
     Route: 065
     Dates: start: 19930725, end: 19930728
  2. ACCUTANE [Suspect]
     Route: 065
     Dates: start: 19930801, end: 19940110

REACTIONS (5)
  - INFLAMMATORY BOWEL DISEASE [None]
  - STRESS [None]
  - NIGHT BLINDNESS [None]
  - ARTHRALGIA [None]
  - COLITIS ULCERATIVE [None]
